FAERS Safety Report 8917019 (Version 3)
Quarter: 2013Q1

REPORT INFORMATION
  Report Type: Spontaneous
  Country: US (occurrence: US)
  Receive Date: 20121120
  Receipt Date: 20130109
  Transmission Date: 20140127
  Serious: No
  Sender: FDA-Public Use
  Company Number: US-ASTRAZENECA-2012SE87204

PATIENT
  Age: 70 Year
  Sex: Male

DRUGS (5)
  1. ATENOLOL [Suspect]
     Route: 048
  2. NEXIUM [Suspect]
     Indication: GASTROOESOPHAGEAL REFLUX DISEASE
     Route: 048
  3. NEFEDIPINE [Concomitant]
  4. SIMVASTATIN [Concomitant]
  5. TAMSOSIN [Concomitant]

REACTIONS (1)
  - Cough [Unknown]
